FAERS Safety Report 6023624-7 (Version None)
Quarter: 2008Q4

REPORT INFORMATION
  Report Type: 
  Country: None (occurrence: None)
  Receive Date: 20081230
  Receipt Date: 20081229
  Transmission Date: 20090506
  Serious: Yes (Hospitalization)
  Sender: FDA-Public Use
  Company Number: DE-JNJFOC-20081206767

PATIENT
  Age: 47 Year
  Sex: Female

DRUGS (6)
  1. LEVOFLOXACIN [Suspect]
     Indication: DRUG USE FOR UNKNOWN INDICATION
     Route: 065
  2. MIDOSTAURIN [Suspect]
     Indication: ACUTE MYELOID LEUKAEMIA
     Route: 065
  3. PLACEBO [Suspect]
     Indication: ACUTE MYELOID LEUKAEMIA
     Route: 065
  4. AMPHOTERICIN B [Suspect]
     Indication: DRUG USE FOR UNKNOWN INDICATION
     Route: 065
  5. METOCLOPRAMIDE [Suspect]
     Indication: DRUG USE FOR UNKNOWN INDICATION
     Route: 065
  6. ARA C [Concomitant]
     Indication: CHEMOTHERAPY

REACTIONS (2)
  - CONVULSION [None]
  - HYPERTENSIVE CRISIS [None]
